FAERS Safety Report 7787648-1 (Version None)
Quarter: 2011Q3

REPORT INFORMATION
  Report Type: 
  Country: None (occurrence: None)
  Receive Date: 20110929
  Receipt Date: 20110919
  Transmission Date: 20111222
  Serious: Yes (Hospitalization)
  Sender: FDA-Public Use
  Company Number: US-US-EMD SERONO, INC.-7084358

PATIENT
  Sex: Female

DRUGS (2)
  1. REBIF [Suspect]
     Indication: PRODUCT USED FOR UNKNOWN INDICATION
     Route: 058
     Dates: start: 20110815
  2. REBIF [Suspect]
     Route: 058

REACTIONS (3)
  - URINARY TRACT INFECTION [None]
  - DIZZINESS [None]
  - BLOOD GLUCOSE INCREASED [None]
